FAERS Safety Report 6994520-3 (Version None)
Quarter: 2010Q3

REPORT INFORMATION
  Report Type: 
  Country: None (occurrence: None)
  Receive Date: 20100917
  Receipt Date: 20100906
  Transmission Date: 20110219
  Serious: Yes (Other)
  Sender: FDA-Public Use
  Company Number: US-JNJFOC-20100902898

PATIENT
  Sex: Female
  Weight: 56.7 kg

DRUGS (13)
  1. TYLENOL (CAPLET) [Suspect]
     Indication: BACK PAIN
     Route: 048
  2. TYLENOL (CAPLET) [Suspect]
     Route: 048
  3. TYLENOL (CAPLET) [Suspect]
     Route: 048
  4. TYLENOL (CAPLET) [Suspect]
     Indication: ARTHRITIS
     Route: 048
  5. TYLENOL (CAPLET) [Suspect]
     Route: 048
  6. TYLENOL (CAPLET) [Suspect]
     Route: 048
  7. ALEVE (CAPLET) [Suspect]
     Indication: ARTHRITIS
  8. ALEVE (CAPLET) [Suspect]
  9. ALEVE (CAPLET) [Suspect]
     Indication: BACK PAIN
  10. ALEVE (CAPLET) [Suspect]
  11. ZOLOFT [Concomitant]
  12. ALPRAZOLAM [Concomitant]
  13. LEVOTHYROXINE [Concomitant]

REACTIONS (2)
  - BLOOD URINE PRESENT [None]
  - PRODUCT QUALITY ISSUE [None]
